FAERS Safety Report 7868309-7 (Version None)
Quarter: 2011Q4

REPORT INFORMATION
  Report Type: 
  Country: None (occurrence: None)
  Receive Date: 20111028
  Receipt Date: 20101213
  Transmission Date: 20120403
  Serious: No
  Sender: FDA-Public Use
  Company Number: US-AMGEN-USASP2010008884

PATIENT
  Age: 70 Year
  Sex: Female

DRUGS (8)
  1. FOLIC ACID [Concomitant]
     Dosage: 1 MG, UNK
  2. CARVEDILOL [Concomitant]
     Dosage: 3.125 MG, UNK
  3. LISINOPRIL [Concomitant]
     Dosage: 5 MG, UNK
  4. HYDROCODONE BITARTRATE + IBUPROFEN [Concomitant]
  5. ENBREL [Suspect]
     Indication: PRODUCT USED FOR UNKNOWN INDICATION
     Dosage: 25 MG, 2 TIMES/WK
  6. NEXIUM [Concomitant]
     Dosage: 20 MG, UNK
  7. CELEBREX [Concomitant]
     Dosage: 50 MG, UNK
  8. LIPITOR [Concomitant]
     Dosage: 10 MG, UNK

REACTIONS (1)
  - DRY MOUTH [None]
